FAERS Safety Report 4957112-3 (Version None)
Quarter: 2006Q1

REPORT INFORMATION
  Report Type: 
  Country: None (occurrence: None)
  Receive Date: 20060329
  Receipt Date: 20050616
  Transmission Date: 20060701
  Serious: Yes (Death, Hospitalization)
  Sender: FDA-Public Use
  Company Number: US-MERCK-0506USA02683

PATIENT
  Age: 55 Year
  Sex: Male
  Weight: 82 kg

DRUGS (1)
  1. VIOXX [Suspect]
     Indication: ARTHRITIS
     Route: 048

REACTIONS (24)
  - AMNESIA [None]
  - ANGINA PECTORIS [None]
  - ANGINA UNSTABLE [None]
  - BRONCHITIS ACUTE [None]
  - CARDIAC DISORDER [None]
  - CARDIAC FAILURE [None]
  - CARDIAC FAILURE CONGESTIVE [None]
  - CELLULITIS [None]
  - CEREBROVASCULAR ACCIDENT [None]
  - CEREBROVASCULAR INSUFFICIENCY [None]
  - CHEST DISCOMFORT [None]
  - CONFUSIONAL STATE [None]
  - CORONARY ARTERY DISEASE [None]
  - CORONARY ARTERY STENOSIS [None]
  - DYSPNOEA [None]
  - EOSINOPHILIC CELLULITIS [None]
  - HYPERTENSION [None]
  - HYPOAESTHESIA [None]
  - HYPOGLYCAEMIA [None]
  - ISCHAEMIC CARDIOMYOPATHY [None]
  - PERIPHERAL VASCULAR DISORDER [None]
  - PULMONARY OEDEMA [None]
  - SKIN ULCER [None]
  - VENTRICULAR TACHYCARDIA [None]
